FAERS Safety Report 17105343 (Version 1)
Quarter: 2019Q4

REPORT INFORMATION
  Report Type: Spontaneous
  Country: FR (occurrence: FR)
  Receive Date: 20191203
  Receipt Date: 20191203
  Transmission Date: 20200122
  Serious: Yes (Other)
  Sender: FDA-Public Use
  Company Number: FR-MYLANLABS-2019M1116798

PATIENT
  Age: 82 Year
  Sex: Male
  Weight: 97 kg

DRUGS (3)
  1. FORTUM                             /00559702/ [Suspect]
     Active Substance: CEFTAZIDIME
     Indication: OSTEITIS
     Dosage: 6 GRAM, QD
     Route: 042
     Dates: end: 20190524
  2. DOXYCYCLINE. [Suspect]
     Active Substance: DOXYCYCLINE
     Indication: OSTEITIS
     Dosage: 200 MILLIGRAM, QD
     Route: 048
     Dates: end: 20190524
  3. CIPROFLOXACIN. [Suspect]
     Active Substance: CIPROFLOXACIN
     Indication: OSTEITIS
     Dosage: 750 MILLIGRAM, QD
     Route: 048
     Dates: end: 20190524

REACTIONS (1)
  - Acute generalised exanthematous pustulosis [Not Recovered/Not Resolved]

NARRATIVE: CASE EVENT DATE: 20190418
